FAERS Safety Report 5693050-9 (Version None)
Quarter: 2008Q2

REPORT INFORMATION
  Report Type: 
  Country: None (occurrence: None)
  Receive Date: 20080401
  Receipt Date: 20080401
  Transmission Date: 20081010
  Serious: Yes (Life-Threatening)
  Sender: FDA-Public Use
  Company Number: None

PATIENT
  Sex: Male
  Weight: 18.1439 kg

DRUGS (2)
  1. SINGULAIR [Suspect]
     Indication: ANXIETY
     Dosage: 5MG 1X/DAY PO
     Route: 048
     Dates: start: 20031215, end: 20070701
  2. SINGULAIR [Suspect]
     Indication: SUICIDAL IDEATION
     Dosage: 5MG 1X/DAY PO
     Route: 048
     Dates: start: 20031215, end: 20070701

REACTIONS (4)
  - ABNORMAL BEHAVIOUR [None]
  - AGITATION [None]
  - ANXIETY [None]
  - SUICIDAL IDEATION [None]
